FAERS Safety Report 23668403 (Version 4)
Quarter: 2025Q3

REPORT INFORMATION
  Report Type: Report from Study
  Country: EU (occurrence: EU)
  Receive Date: 20240325
  Receipt Date: 20250903
  Transmission Date: 20251020
  Serious: Yes (Death, Other)
  Sender: AUROBINDO
  Company Number: EU-AUROBINDO-AUR-APL-2021-014379

PATIENT
  Age: 43 Year
  Sex: Male

DRUGS (4)
  1. PREGABALIN [Interacting]
     Active Substance: PREGABALIN
     Indication: Substance use
     Route: 065
  2. COCAINE [Interacting]
     Active Substance: COCAINE
     Indication: Product used for unknown indication
     Route: 065
  3. CLONAZEPAM [Interacting]
     Active Substance: CLONAZEPAM
     Indication: Product used for unknown indication
     Route: 065
  4. METHADONE [Interacting]
     Active Substance: METHADONE HYDROCHLORIDE
     Indication: Substance use
     Route: 065

REACTIONS (16)
  - Aspiration [Fatal]
  - Respiratory depression [Fatal]
  - Death [Fatal]
  - Visceral congestion [Fatal]
  - Asphyxia [Fatal]
  - Pulmonary oedema [Fatal]
  - Toxicity to various agents [Fatal]
  - Drug level above therapeutic [Fatal]
  - Drug abuse [Fatal]
  - Substance abuse [Fatal]
  - Drug interaction [Fatal]
  - Intentional overdose [Fatal]
  - Poisoning [Fatal]
  - Intentional product misuse [Fatal]
  - Drug dependence [Unknown]
  - Product administration error [Unknown]
